FAERS Safety Report 7715237-3 (Version None)
Quarter: 2011Q3

REPORT INFORMATION
  Report Type: 
  Country: None (occurrence: None)
  Receive Date: 20110810
  Receipt Date: 20110524
  Transmission Date: 20111222
  Serious: No
  Sender: FDA-Public Use
  Company Number: 1000021122

PATIENT
  Sex: Female

DRUGS (8)
  1. TRAZODONE (TRAZODONE) (TRAZODONE) [Concomitant]
  2. PREVACID (LANSOPRAZOLE) (LANSOPRAZOLE) [Concomitant]
  3. ATENOLOL [Concomitant]
  4. SAVELLA [Suspect]
     Indication: FIBROMYALGIA
     Dosage: SEE IMAGE, ORAL
     Route: 048
     Dates: start: 20110301, end: 20110301
  5. SAVELLA [Suspect]
     Indication: FIBROMYALGIA
     Dosage: SEE IMAGE, ORAL
     Route: 048
     Dates: start: 20110301, end: 20110301
  6. SAVELLA [Suspect]
     Indication: FIBROMYALGIA
     Dosage: SEE IMAGE, ORAL
     Route: 048
     Dates: start: 20110301, end: 20110301
  7. SAVELLA [Suspect]
     Indication: FIBROMYALGIA
     Dosage: SEE IMAGE, ORAL
     Route: 048
     Dates: start: 20110301
  8. PLAQUENIL (HYDROXYCHLOROQUINE) (HYDROXYCHLOROQUINE) [Concomitant]

REACTIONS (1)
  - PAIN [None]
